FAERS Safety Report 9199664 (Version 3)
Quarter: 2013Q3

REPORT INFORMATION
  Report Type: Spontaneous
  Country: US (occurrence: US)
  Receive Date: 20130329
  Receipt Date: 20130826
  Transmission Date: 20140515
  Serious: Yes (Other)
  Sender: FDA-Public Use
  Company Number: US-PFIZER INC-2013098142

PATIENT
  Age: 64 Year
  Sex: Female
  Weight: 59 kg

DRUGS (8)
  1. PREMPRO [Suspect]
     Indication: HORMONE REPLACEMENT THERAPY
     Dosage: 0.625/2.5 MG, 1X/DAY
     Route: 048
     Dates: start: 2000, end: 2007
  2. PREMPRO [Suspect]
     Dosage: 0.3/1.5 MG, 1X/DAY
     Route: 048
     Dates: start: 2007
  3. PREMPRO [Suspect]
     Dosage: 0.3/1.5 MG, 1X/DAY
     Route: 048
     Dates: start: 2013
  4. SUDAFED [Concomitant]
     Indication: SINUS DISORDER
     Dosage: UNK
  5. ALLEGRA [Concomitant]
     Dosage: UNK
  6. CLARITIN [Concomitant]
     Dosage: UNK
  7. ASTEPRO [Concomitant]
     Dosage: UNK
  8. ZYRTEC [Concomitant]
     Dosage: UNK

REACTIONS (4)
  - Suicidal ideation [Recovered/Resolved]
  - Depression [Recovered/Resolved]
  - Arthralgia [Recovered/Resolved]
  - Pain [Recovered/Resolved]
